FAERS Safety Report 7224931-2 (Version None)
Quarter: 2011Q1

REPORT INFORMATION
  Report Type: 
  Country: None (occurrence: None)
  Receive Date: 20110103
  Receipt Date: 20101215
  Transmission Date: 20110831
  Serious: Yes (Hospitalization)
  Sender: FDA-Public Use
  Company Number: 1000005134

PATIENT
  Age: 89 Year
  Sex: Female

DRUGS (2)
  1. TETRAZEPAM (TETRAZEPAM) (TABLETS) (TETRAZEPAM) [Concomitant]
  2. ESCITALOPRAM [Suspect]
     Dosage: ORAL
     Route: 048
     Dates: start: 20090207, end: 20090225

REACTIONS (8)
  - LEUKOCYTOSIS [None]
  - LYMPHADENOPATHY [None]
  - ACUTE GENERALISED EXANTHEMATOUS PUSTULOSIS [None]
  - RASH [None]
  - CHEILITIS [None]
  - RENAL FAILURE ACUTE [None]
  - INFLAMMATION [None]
  - BAND NEUTROPHIL COUNT INCREASED [None]
